FAERS Safety Report 23532055 (Version 1)
Quarter: 2024Q1

REPORT INFORMATION
  Report Type: Spontaneous
  Country: US (occurrence: US)
  Receive Date: 20240216
  Receipt Date: 20240216
  Transmission Date: 20240410
  Serious: No
  Sender: FDA-Public Use
  Company Number: US-SA-SAC20240213001276

PATIENT
  Age: 70 Year
  Sex: Female

DRUGS (17)
  1. DUPIXENT [Suspect]
     Active Substance: DUPILUMAB
     Indication: Dermatitis atopic
     Dosage: 300MG QOW
     Route: 058
     Dates: start: 20210727
  2. AZITHROMYCIN [Concomitant]
     Active Substance: AZITHROMYCIN
  3. AZELASTINE [Concomitant]
     Active Substance: AZELASTINE\AZELASTINE HYDROCHLORIDE
  4. VALACYCLOVIR [Concomitant]
     Active Substance: VALACYCLOVIR HYDROCHLORIDE
  5. AMOXICILLIN [Concomitant]
     Active Substance: AMOXICILLIN
  6. MESALAMINE [Concomitant]
     Active Substance: MESALAMINE
  7. PREDNISONE [Concomitant]
     Active Substance: PREDNISONE
  8. MUCUS RELIEF [Concomitant]
     Active Substance: GUAIFENESIN
  9. SINGULAIR [Concomitant]
     Active Substance: MONTELUKAST SODIUM
  10. QUERCETIN [Concomitant]
     Active Substance: QUERCETIN
  11. OLEA EUROPAEA LEAF [Concomitant]
     Active Substance: OLEA EUROPAEA LEAF
  12. SYNTHROID [Concomitant]
     Active Substance: LEVOTHYROXINE SODIUM
  13. LIOTHYRONINE [Concomitant]
     Active Substance: LIOTHYRONINE
  14. ALBUTEROL [Concomitant]
     Active Substance: ALBUTEROL
  15. FLUTICASONE [Concomitant]
     Active Substance: FLUTICASONE
  16. PREBIOTICS NOS [Concomitant]
  17. MAGNESIUM [Concomitant]
     Active Substance: MAGNESIUM

REACTIONS (3)
  - Injection site pain [Unknown]
  - Condition aggravated [Unknown]
  - Intercepted product storage error [Unknown]

NARRATIVE: CASE EVENT DATE: 20240209
